FAERS Safety Report 10526162 (Version 1)
Quarter: 2014Q4

REPORT INFORMATION
  Report Type: Spontaneous
  Country: IN (occurrence: IN)
  Receive Date: 20141017
  Receipt Date: 20141017
  Transmission Date: 20150528
  Serious: Yes (Life-Threatening)
  Sender: FDA-Public Use
  Company Number: IN-ASTRAZENECA-2014SE77391

PATIENT
  Age: 52 Year
  Sex: Male

DRUGS (2)
  1. BRILINTA [Suspect]
     Active Substance: TICAGRELOR
     Indication: ACUTE CORONARY SYNDROME
     Route: 048
     Dates: start: 20141004
  2. INJECTION DILZEM [Concomitant]
     Dosage: 1ML/5 MG
     Route: 042

REACTIONS (2)
  - Thrombosis in device [Recovered/Resolved]
  - Drug dose omission [Unknown]
